FAERS Safety Report 7183997-9 (Version None)
Quarter: 2010Q4

REPORT INFORMATION
  Report Type: 
  Country: None (occurrence: None)
  Receive Date: 20101222
  Receipt Date: 20101217
  Transmission Date: 20110411
  Serious: Yes (Hospitalization)
  Sender: FDA-Public Use
  Company Number: US-AMGEN-USASP2010009945

PATIENT

DRUGS (2)
  1. ENBREL [Suspect]
     Indication: RHEUMATOID ARTHRITIS
     Dosage: 50 MG, QWK
     Dates: start: 20090201
  2. ENBREL [Suspect]
     Indication: PSORIASIS

REACTIONS (4)
  - DEVICE MALFUNCTION [None]
  - DRUG EFFECT DECREASED [None]
  - HAEMOGLOBIN DECREASED [None]
  - MUSCULOSKELETAL STIFFNESS [None]
